FAERS Safety Report 7063157-2 (Version None)
Quarter: 2010Q4

REPORT INFORMATION
  Report Type: 
  Country: None (occurrence: None)
  Receive Date: 20101026
  Receipt Date: 20100526
  Transmission Date: 20110411
  Serious: No
  Sender: FDA-Public Use
  Company Number: US-PFIZER INC-2010066496

PATIENT
  Sex: Male
  Weight: 109 kg

DRUGS (8)
  1. LIPITOR [Suspect]
     Dosage: 40 MG, 1X/DAY
     Route: 048
     Dates: start: 20090816
  2. PLAVIX [Suspect]
     Dosage: 75 MG, 1X/DAY
     Route: 048
     Dates: start: 20090816
  3. NIASPAN [Suspect]
     Dosage: 1000 MG, 1X/DAY
     Route: 048
     Dates: start: 20090816
  4. LOPRESSOR [Concomitant]
     Indication: HYPERTENSION
     Dosage: 75 MG, 2X/DAY
     Route: 048
     Dates: start: 20090801
  5. VALSARTAN [Concomitant]
     Indication: HYPERTENSION
     Dosage: 80 MG, 1X/DAY
     Route: 048
  6. CLONAZEPAM [Concomitant]
     Indication: ANXIETY
     Dosage: 0.5 MG, 2X/DAY
     Route: 048
  7. CLONAZEPAM [Concomitant]
     Indication: DEPRESSION
  8. ACETYLSALICYLIC ACID [Concomitant]
     Dosage: 81 MG, 1X/DAY

REACTIONS (4)
  - FLUSHING [None]
  - MUSCULOSKELETAL PAIN [None]
  - MUSCULOSKELETAL STIFFNESS [None]
  - PAIN IN EXTREMITY [None]
